FAERS Safety Report 10875044 (Version 1)
Quarter: 2015Q1

REPORT INFORMATION
  Report Type: Spontaneous
  Country: US (occurrence: US)
  Receive Date: 20150227
  Receipt Date: 20150227
  Transmission Date: 20150721
  Serious: No
  Sender: FDA-Public Use
  Company Number: US-ASTRAZENECA-2015SE17433

PATIENT
  Sex: Male

DRUGS (2)
  1. SYMBICORT [Suspect]
     Active Substance: BUDESONIDE\FORMOTEROL FUMARATE DIHYDRATE
     Dosage: 160/4.5MCG,  FREQUENCY UNKNOWN
     Route: 055
  2. SYMBICORT [Suspect]
     Active Substance: BUDESONIDE\FORMOTEROL FUMARATE DIHYDRATE
     Dosage: 160/4.5MCG,  FREQUENCY UNKNOWN
     Route: 055

REACTIONS (12)
  - Asthma [Unknown]
  - Adverse event [Unknown]
  - Vocal cord inflammation [Unknown]
  - Larynx irritation [Unknown]
  - Upper respiratory tract infection [Unknown]
  - Presyncope [Unknown]
  - Secretion discharge [Unknown]
  - Speech disorder [Unknown]
  - Nasopharyngitis [Unknown]
  - Cough [Unknown]
  - Drug ineffective [Unknown]
  - Aphonia [Unknown]

NARRATIVE: CASE EVENT DATE: 201412
